FAERS Safety Report 24199673 (Version 1)
Quarter: 2024Q3

REPORT INFORMATION
  Report Type: Spontaneous
  Country: US (occurrence: US)
  Receive Date: 20240812
  Receipt Date: 20240812
  Transmission Date: 20241017
  Serious: No
  Sender: SANOFI AVENTIS
  Company Number: US-SA-SAC20240808000483

PATIENT
  Sex: Female

DRUGS (2)
  1. DUPIXENT [Suspect]
     Active Substance: DUPILUMAB
     Indication: Neurodermatitis
     Dosage: UNK UNK, QOW
     Route: 058
     Dates: start: 202211
  2. ELIQUIS [Concomitant]
     Active Substance: APIXABAN
     Indication: Coagulopathy
     Dosage: UNK

REACTIONS (6)
  - Skin haemorrhage [Unknown]
  - Sleep disorder due to a general medical condition [Unknown]
  - Rash macular [Unknown]
  - Scratch [Unknown]
  - Skin atrophy [Unknown]
  - Pruritus [Unknown]
